FAERS Safety Report 11086980 (Version 1)
Quarter: 2015Q2

REPORT INFORMATION
  Report Type: Spontaneous
  Country: US (occurrence: None)
  Receive Date: 20150501
  Receipt Date: 20150501
  Transmission Date: 20150821
  Serious: Yes (Other)
  Sender: FDA-Public Use
  Company Number: None

PATIENT
  Age: 64 Year
  Sex: Male
  Weight: 64.5 kg

DRUGS (2)
  1. EXJADE [Suspect]
     Active Substance: DEFERASIROX
     Indication: IRON OVERLOAD
     Dosage: 500MG 2 TABS QD PO
     Route: 048
     Dates: start: 20130813
  2. EXJADE [Suspect]
     Active Substance: DEFERASIROX
     Dosage: 250MG 1 TAB QD PO
     Route: 048
     Dates: start: 20150430

REACTIONS (1)
  - Renal pain [None]

NARRATIVE: CASE EVENT DATE: 20150415
